FAERS Safety Report 5202834-2 (Version None)
Quarter: 2006Q4

REPORT INFORMATION
  Report Type: 
  Country: None (occurrence: None)
  Receive Date: 20061016
  Receipt Date: 20060817
  Transmission Date: 20070319
  Serious: No
  Sender: FDA-Public Use
  Company Number: 2006SP003042

PATIENT
  Age: 55 Year
  Sex: Female
  Weight: 90.7194 kg

DRUGS (6)
  1. LUNESTA [Suspect]
     Indication: INSOMNIA
     Dosage: 3 MGL ORAL
     Route: 048
     Dates: start: 20060816
  2. SONAA [Concomitant]
  3. PAXIL [Concomitant]
  4. DYAZIDE [Concomitant]
  5. PRILOSEC [Concomitant]
  6. THYROID TAB [Concomitant]

REACTIONS (1)
  - DYSGEUSIA [None]
